FAERS Safety Report 7651520-8 (Version None)
Quarter: 2011Q3

REPORT INFORMATION
  Report Type: 
  Country: None (occurrence: None)
  Receive Date: 20110802
  Receipt Date: 20110728
  Transmission Date: 20111222
  Serious: Yes (Hospitalization)
  Sender: FDA-Public Use
  Company Number: PHHO2010US19681

PATIENT
  Sex: Female
  Weight: 58.6 kg

DRUGS (7)
  1. AFINITOR [Suspect]
     Dosage: 70MG WEEKLY
     Dates: end: 20101229
  2. TEMOZOLOMIDE [Suspect]
     Indication: GLIOBLASTOMA
     Dosage: UNK
     Dates: end: 20101217
  3. TEMOZOLOMIDE [Suspect]
     Dosage: UNK
     Dates: start: 20101221, end: 20101222
  4. TEMOZOLOMIDE [Suspect]
     Dosage: UNK
     Dates: end: 20101229
  5. AFINITOR [Suspect]
     Indication: GLIOBLASTOMA
     Dosage: 70 MG WEEKLY
     Route: 048
     Dates: start: 20101208, end: 20101215
  6. TEMOZOLOMIDE [Suspect]
     Dosage: NO TREATMENT
     Dates: start: 20101218, end: 20101220
  7. RADIATION [Suspect]
     Indication: GLIOBLASTOMA

REACTIONS (13)
  - MALAISE [None]
  - NAUSEA [None]
  - GASTROENTERITIS [None]
  - ASTHENIA [None]
  - SYNCOPE [None]
  - HYPOPHAGIA [None]
  - CONFUSIONAL STATE [None]
  - FALL [None]
  - HYPOTENSION [None]
  - VOMITING [None]
  - FATIGUE [None]
  - DEHYDRATION [None]
  - ORAL PAIN [None]
